FAERS Safety Report 6724432-1 (Version None)
Quarter: 2010Q2

REPORT INFORMATION
  Report Type: 
  Country: None (occurrence: None)
  Receive Date: 20100513
  Receipt Date: 20100505
  Transmission Date: 20101027
  Serious: Yes (Other)
  Sender: FDA-Public Use
  Company Number: US-PFIZER INC-2010056991

PATIENT
  Sex: Female
  Weight: 65 kg

DRUGS (8)
  1. LIPITOR [Suspect]
     Indication: ARTERIAL OCCLUSIVE DISEASE
     Dosage: 80 MG, 1X/DAY
     Route: 048
     Dates: start: 20100407, end: 20100428
  2. LIPITOR [Suspect]
     Dosage: 40 MG, 1X/DAY
     Route: 048
     Dates: start: 20100503, end: 20100504
  3. LIPITOR [Suspect]
     Dosage: UNK
     Route: 048
  4. LISINOPRIL [Concomitant]
     Indication: HYPERTENSION
     Dosage: 20/25 MG, DAILY
  5. VERAPAMIL [Concomitant]
     Indication: HYPERTENSION
     Dosage: 240 MG, DAILY
  6. SYMBICORT [Concomitant]
     Indication: LUNG INFECTION
     Dosage: UNK
  7. SPIRIVA [Concomitant]
     Indication: LUNG INFECTION
     Dosage: 18 UG, UNK
  8. PROAIR HFA [Concomitant]
     Indication: BRONCHOSPASM
     Dosage: UNK

REACTIONS (7)
  - ABASIA [None]
  - ASTHENIA [None]
  - DYSPNOEA [None]
  - MUSCLE SPASMS [None]
  - PAIN [None]
  - STENT PLACEMENT [None]
  - TREMOR [None]
